FAERS Safety Report 25641391 (Version 3)
Quarter: 2025Q4

REPORT INFORMATION
  Report Type: Spontaneous
  Country: US (occurrence: US)
  Receive Date: 20250804
  Receipt Date: 20251110
  Transmission Date: 20260118
  Serious: No
  Sender: PFIZER
  Company Number: US-PFIZER INC-PV202500093620

PATIENT
  Sex: Female

DRUGS (2)
  1. ETRASIMOD [Suspect]
     Active Substance: ETRASIMOD
     Indication: Colitis ulcerative
     Dosage: 2 MG, DAILY
     Route: 048
  2. ETRASIMOD [Suspect]
     Active Substance: ETRASIMOD
     Dosage: 2 MG, EVERY OTHER DAY

REACTIONS (3)
  - Lymphocyte count decreased [Unknown]
  - Off label use [Unknown]
  - Drug ineffective [Unknown]
